FAERS Safety Report 6860962-X (Version None)
Quarter: 2010Q3

REPORT INFORMATION
  Report Type: 
  Country: None (occurrence: None)
  Receive Date: 20100720
  Receipt Date: 20100712
  Transmission Date: 20110219
  Serious: Yes (Other)
  Sender: FDA-Public Use
  Company Number: US-JNJCH-2010016546

PATIENT
  Age: 68 Year
  Sex: Female
  Weight: 57.6 kg

DRUGS (4)
  1. BENADRYL ALLERGY DYE-FREE [Suspect]
     Indication: HYPERSENSITIVITY
     Dosage: TEXT:ONE OR TWO TABLETS AS NEEDED
     Route: 048
  2. PROPAFENONE [Concomitant]
     Indication: CARDIAC DISORDER
     Dosage: TEXT:UNKNOWN
     Route: 065
  3. ATENOLOL [Concomitant]
     Indication: CARDIAC DISORDER
     Dosage: TEXT:UNKNOWN
     Route: 065
  4. WARFARIN SODIUM [Concomitant]
     Indication: CARDIAC DISORDER
     Dosage: TEXT:UNKNOWN
     Route: 065

REACTIONS (3)
  - BACTERIAL TEST POSITIVE [None]
  - MALAISE [None]
  - SINUSITIS [None]
